FAERS Safety Report 7151809-5 (Version None)
Quarter: 2010Q4

REPORT INFORMATION
  Report Type: 
  Country: None (occurrence: None)
  Receive Date: 20101123
  Receipt Date: 20100901
  Transmission Date: 20110411
  Serious: No
  Sender: FDA-Public Use
  Company Number: 018249

PATIENT
  Sex: Female
  Weight: 79.4 kg

DRUGS (1)
  1. CIMZIA [Suspect]
     Indication: CROHN'S DISEASE
     Dosage: TWO SHOTS EVERY FOUR WEEKS; SUBCUTANEOUS
     Route: 058
     Dates: start: 20100707

REACTIONS (2)
  - INJECTION SITE HAEMATOMA [None]
  - INJECTION SITE HAEMORRHAGE [None]
